FAERS Safety Report 23644280 (Version 3)
Quarter: 2024Q2

REPORT INFORMATION
  Report Type: Spontaneous
  Country: US (occurrence: US)
  Receive Date: 20240318
  Receipt Date: 20240404
  Transmission Date: 20240716
  Serious: Yes (Disabling)
  Sender: FDA-Public Use
  Company Number: US-SA-2024SA084821

PATIENT
  Age: 11 Year
  Sex: Female

DRUGS (1)
  1. DUPIXENT [Suspect]
     Active Substance: DUPILUMAB
     Indication: Asthma
     Dosage: 200 MG, QOW
     Route: 058
     Dates: start: 20231220

REACTIONS (4)
  - Loss of personal independence in daily activities [Unknown]
  - Dyspnoea exertional [Unknown]
  - Injection site swelling [Unknown]
  - Injection site pain [Unknown]

NARRATIVE: CASE EVENT DATE: 20240301
